FAERS Safety Report 9180206 (Version 1)
Quarter: 2013Q1

REPORT INFORMATION
  Report Type: Spontaneous
  Country: US (occurrence: US)
  Receive Date: 20130322
  Receipt Date: 20130322
  Transmission Date: 20140127
  Serious: Yes (Hospitalization)
  Sender: FDA-Public Use
  Company Number: US-AMGEN-USASP2012062728

PATIENT
  Age: 28 Year
  Sex: Female

DRUGS (2)
  1. ENBREL [Suspect]
     Indication: PSORIASIS
     Dosage: 50 MG, QWK
     Dates: start: 20120501, end: 20130301
  2. METHOTREXATE [Concomitant]
     Dosage: 12 HRS APART  X 4 DOSES ONCE WEEKLY
     Dates: start: 20120601

REACTIONS (2)
  - Tonsillitis [Recovered/Resolved]
  - Condition aggravated [Unknown]
